FAERS Safety Report 8960907 (Version 1)
Quarter: 2012Q4

REPORT INFORMATION
  Report Type: 
  Country: US (occurrence: US)
  Receive Date: 20121213
  Receipt Date: 20121213
  Transmission Date: 20130627
  Serious: No
  Sender: FDA-Public Use
  Company Number: US-009507513-1212USA002791

PATIENT

DRUGS (1)
  1. JANUMET [Suspect]
     Dosage: UNK UNK, qid
     Route: 048
     Dates: start: 20121122

REACTIONS (4)
  - Inappropriate schedule of drug administration [Unknown]
  - Wrong technique in drug usage process [Unknown]
  - No adverse event [Unknown]
  - Wrong technique in drug usage process [Unknown]
